FAERS Safety Report 17555898 (Version 2)
Quarter: 2020Q2

REPORT INFORMATION
  Report Type: Spontaneous
  Country: US (occurrence: US)
  Receive Date: 20200318
  Receipt Date: 20200625
  Transmission Date: 20200713
  Serious: Yes (Hospitalization, Other)
  Sender: FDA-Public Use
  Company Number: US-PFIZER INC-2019513884

PATIENT
  Age: 80 Year
  Sex: Male
  Weight: 74.39 kg

DRUGS (12)
  1. AMLODIPINE [Concomitant]
     Active Substance: AMLODIPINE BESYLATE
     Dosage: 10 MG, 1X/DAY
     Route: 048
  2. VYNDAQEL [Suspect]
     Active Substance: TAFAMIDIS MEGLUMINE
     Indication: ATRIOVENTRICULAR BLOCK
     Dosage: 80 MG, 1X/DAY (TAKE FOUR TABLET BY MOUTH IN THE MORNING)
     Route: 048
     Dates: start: 201911
  3. VYNDAQEL [Suspect]
     Active Substance: TAFAMIDIS MEGLUMINE
     Indication: CARDIAC AMYLOIDOSIS
     Dosage: 80 MG, 1X/DAY (FOUR 20MG TABLETS ONCE A DAY BY MOUTH (80MG DAILY))
     Route: 048
     Dates: start: 201911
  4. FUROSEMIDE. [Concomitant]
     Active Substance: FUROSEMIDE
     Dosage: 60 MG, 1X/DAY [20MG; TAKE THREE IN THE MORNING]
     Route: 048
  5. POTASSIUM [Concomitant]
     Active Substance: POTASSIUM
     Dosage: 30 MG, 1X/DAY(10MG; TAKE THREE IN THE MORNING)
     Route: 048
  6. MAGNESIUM [Concomitant]
     Active Substance: MAGNESIUM
     Dosage: 250 MG, DAILY [250MG; TAKE ONE DAILY]
     Route: 048
  7. FUROSEMIDE. [Concomitant]
     Active Substance: FUROSEMIDE
     Dosage: 60 MG, 2X/DAY [TAKING 3 IN THE MORNING AND THREE IN THE AFTERNOON]
     Route: 048
     Dates: start: 20200127
  8. POTASSIUM [Concomitant]
     Active Substance: POTASSIUM
     Dosage: 30 MG, 2X/DAY [ [10MG; TAKE THREE IN THE MORNING/INCREASED BY ADDING 3 TABLETS IN AFTERNOON]
     Route: 048
     Dates: start: 20200127
  9. VIT D [Concomitant]
     Active Substance: VITAMIN D NOS
     Dosage: 25 MG, 1X/DAY
     Route: 048
  10. METOPROLOL. [Concomitant]
     Active Substance: METOPROLOL
     Dosage: 25 MG, 1X/DAY
     Route: 048
  11. VYNDAQEL [Suspect]
     Active Substance: TAFAMIDIS MEGLUMINE
     Indication: ASTHENIA
     Dosage: 80 MG, 1X/DAY
     Route: 048
     Dates: start: 201911
  12. ASPIRIN [ACETYLSALICYLIC ACID] [Concomitant]
     Active Substance: ASPIRIN
     Dosage: 81 MG, DAILY [81MG; TAKE ONE DAILY]
     Route: 048

REACTIONS (7)
  - Dyspnoea [Recovered/Resolved]
  - Off label use [Unknown]
  - Discomfort [Unknown]
  - Drug effective for unapproved indication [Unknown]
  - Heart rate increased [Unknown]
  - Hypertension [Unknown]
  - Weight increased [Unknown]

NARRATIVE: CASE EVENT DATE: 20200125
